FAERS Safety Report 6463838-5 (Version None)
Quarter: 2009Q4

REPORT INFORMATION
  Report Type: 
  Country: None (occurrence: None)
  Receive Date: 20091201
  Receipt Date: 20091117
  Transmission Date: 20100525
  Serious: Yes (Hospitalization)
  Sender: FDA-Public Use
  Company Number: US-CELGENEUS-163-21880-09111451

PATIENT
  Sex: Female

DRUGS (1)
  1. REVLIMID [Suspect]
     Indication: MULTIPLE MYELOMA
     Route: 048
     Dates: start: 20080715

REACTIONS (4)
  - APHONIA [None]
  - BODY TEMPERATURE INCREASED [None]
  - OROPHARYNGEAL PAIN [None]
  - PALPITATIONS [None]
